FAERS Safety Report 21254983 (Version 3)
Quarter: 2025Q3

REPORT INFORMATION
  Report Type: Spontaneous
  Country: EU (occurrence: EU)
  Receive Date: 20220825
  Receipt Date: 20250707
  Transmission Date: 20251021
  Serious: Yes (Life-Threatening, Other)
  Sender: MYLAN
  Company Number: EU-SUN PHARMACEUTICAL INDUSTRIES LTD-2022R1-345587

PATIENT
  Age: 3 Year
  Sex: Female

DRUGS (4)
  1. LEVETIRACETAM [Suspect]
     Active Substance: LEVETIRACETAM
     Indication: Gliosis
  2. VALPROIC ACID [Suspect]
     Active Substance: VALPROIC ACID
     Indication: Gliosis
  3. CLOBAZAM [Suspect]
     Active Substance: CLOBAZAM
     Indication: Gliosis
  4. TOPIRAMATE [Suspect]
     Active Substance: TOPIRAMATE
     Indication: Gliosis

REACTIONS (5)
  - Apnoea [Unknown]
  - Cognitive disorder [Recovering/Resolving]
  - Epileptic encephalopathy [Recovering/Resolving]
  - Drug ineffective [Unknown]
  - Drug intolerance [Recovered/Resolved]

NARRATIVE: CASE EVENT DATE: 20130101
